FAERS Safety Report 5520031-8 (Version None)
Quarter: 2007Q4

REPORT INFORMATION
  Report Type: 
  Country: None (occurrence: None)
  Receive Date: 20071114
  Receipt Date: 20071106
  Transmission Date: 20080405
  Serious: Yes (Hospitalization)
  Sender: FDA-Public Use
  Company Number: 2007-03368

PATIENT
  Age: 63 Year
  Sex: Male

DRUGS (13)
  1. VELCADE [Suspect]
     Indication: MULTIPLE MYELOMA
     Dosage: 1.30 MG/M2
     Dates: start: 20070724, end: 20070928
  2. RITUXIMAB(RITUXIMAB) INJECTION, 375MG/M2 [Suspect]
     Indication: MANTLE CELL LYMPHOMA
     Dosage: 375.00 MG/M2
     Dates: start: 20070724, end: 20070925
  3. CYCLOPHOSPHAMIDE [Suspect]
     Indication: MANTLE CELL LYMPHOMA
     Dosage: 750.00 MG/M2
     Dates: start: 20070724, end: 20070925
  4. ADRIAMYCIN RDF [Suspect]
     Indication: MANTLE CELL LYMPHOMA
     Dosage: 50.00 MG/M2
     Dates: start: 20070724, end: 20070925
  5. VINCRISTINE [Suspect]
     Indication: MANTLE CELL LYMPHOMA
     Dosage: 1.40 MG/M2
     Dates: start: 20070724, end: 20070925
  6. PREDNISONE TAB [Suspect]
     Indication: MANTLE CELL LYMPHOMA
     Dosage: 50.00 MG
     Dates: start: 20070724, end: 20070925
  7. GLYBURIDE [Concomitant]
  8. METFORMIN HCL [Concomitant]
  9. BACTRIM [Concomitant]
  10. VALTREX [Concomitant]
  11. REGLAN [Concomitant]
  12. PROTONIX [Concomitant]
  13. LIPITOR [Concomitant]

REACTIONS (2)
  - DEPRESSED LEVEL OF CONSCIOUSNESS [None]
  - HYPOGLYCAEMIA [None]
